FAERS Safety Report 12964717 (Version 3)
Quarter: 2018Q1

REPORT INFORMATION
  Report Type: Spontaneous
  Country: US (occurrence: US)
  Receive Date: 20161122
  Receipt Date: 20180215
  Transmission Date: 20180508
  Serious: Yes (Other)
  Sender: FDA-Public Use
  Company Number: US-PFIZER INC-2016536279

PATIENT
  Age: 61 Year
  Sex: Female

DRUGS (1)
  1. LYRICA [Suspect]
     Active Substance: PREGABALIN
     Indication: NEUROMYELITIS OPTICA SPECTRUM DISORDER
     Dosage: UNK

REACTIONS (3)
  - Product use in unapproved indication [Unknown]
  - Paralysis [Unknown]
  - Pain [Unknown]
